FAERS Safety Report 9503137 (Version 2)
Quarter: 2013Q3

REPORT INFORMATION
  Report Type: Spontaneous
  Country: DZ (occurrence: DZ)
  Receive Date: 20130906
  Receipt Date: 20130920
  Transmission Date: 20140515
  Serious: Yes (Hospitalization, Other)
  Sender: FDA-Public Use
  Company Number: DZ-ROCHE-1270476

PATIENT
  Sex: Female

DRUGS (2)
  1. MABTHERA [Suspect]
     Indication: SJOGREN^S SYNDROME
     Dosage: TWO INFUSIONS WITH 15 DAYS DELAY
     Route: 042
  2. KETOCONAZOLE [Suspect]
     Indication: ORAL FUNGAL INFECTION
     Route: 065
     Dates: end: 2013

REACTIONS (13)
  - Lung disorder [Recovered/Resolved]
  - White blood cell count increased [Recovered/Resolved]
  - Haemoglobin decreased [Recovered/Resolved]
  - Pyrexia [Recovered/Resolved]
  - Herpes virus infection [Recovered/Resolved]
  - Oral fungal infection [Recovered/Resolved]
  - Infection [Recovered/Resolved]
  - Hepatotoxicity [Recovered/Resolved]
  - Immunoglobulins decreased [Recovered/Resolved]
  - Gamma-glutamyltransferase increased [Recovered/Resolved]
  - Fungal infection [Unknown]
  - Viral infection [Unknown]
  - Off label use [Unknown]
